FAERS Safety Report 9610159 (Version 1)
Quarter: 2013Q4

REPORT INFORMATION
  Report Type: Spontaneous
  Country: FR (occurrence: FR)
  Receive Date: 20131009
  Receipt Date: 20131009
  Transmission Date: 20140711
  Serious: Yes (Life-Threatening, Hospitalization)
  Sender: FDA-Public Use
  Company Number: FR-TEVA-435623ISR

PATIENT
  Age: 38 Year
  Sex: Female

DRUGS (3)
  1. LEELOO [Suspect]
     Indication: CONTRACEPTION
     Route: 048
     Dates: start: 201303, end: 20130820
  2. KETOPROFEN [Suspect]
     Indication: BACK PAIN
     Dates: start: 201307, end: 20130820
  3. LODINE [Suspect]
     Indication: BACK PAIN
     Dosage: 1 TO 2/D
     Dates: start: 201307, end: 20130820

REACTIONS (2)
  - Pulmonary embolism [Unknown]
  - Pulmonary infarction [Unknown]
